FAERS Safety Report 5183149-8 (Version None)
Quarter: 2006Q4

REPORT INFORMATION
  Report Type: 
  Country: None (occurrence: None)
  Receive Date: 20061220
  Receipt Date: 20051222
  Transmission Date: 20070319
  Serious: No
  Sender: FDA-Public Use
  Company Number: US-GLAXOSMITHKLINE-A0586782A

PATIENT
  Age: 62 Year
  Sex: Female

DRUGS (1)
  1. AMERICAN FARE NTS, 21MG STEP 1 [Suspect]
     Indication: SMOKING CESSATION THERAPY
     Dates: start: 20051220, end: 20051222

REACTIONS (2)
  - ANXIETY [None]
  - HEART RATE INCREASED [None]
